FAERS Safety Report 19264472 (Version 1)
Quarter: 2021Q2

REPORT INFORMATION
  Report Type: Spontaneous
  Country: US (occurrence: US)
  Receive Date: 20210513
  Receipt Date: 20210513
  Transmission Date: 20210717
  Serious: No
  Sender: FDA-Public Use
  Company Number: None

PATIENT
  Age: 69 Year
  Sex: Male
  Weight: 83.46 kg

DRUGS (10)
  1. TRULICITY [Suspect]
     Active Substance: DULAGLUTIDE
  2. ATORVASTATIN [Concomitant]
     Active Substance: ATORVASTATIN
  3. METFORMIN HCL 1000MG [Concomitant]
  4. TRULICITY 1.5MG/.5ML [Concomitant]
  5. VITAMIN D3 1000 IU 25MCG [Concomitant]
  6. METOPROLOL ER 25MG XL [Concomitant]
  7. BASAGLAR KWIKPEN (INSULIN) [Concomitant]
  8. RAMPIRIL 5MG [Concomitant]
  9. FUROSEMIDE (LASIX) 20MG [Concomitant]
  10. CLOPIDOGREL TAB 75MG [Concomitant]

REACTIONS (3)
  - Product design issue [None]
  - Wrong technique in device usage process [None]
  - Wrong technique in product usage process [None]

NARRATIVE: CASE EVENT DATE: 20201115
